FAERS Safety Report 9411017 (Version 1)
Quarter: 2013Q3

REPORT INFORMATION
  Report Type: Spontaneous
  Country: CA (occurrence: CA)
  Receive Date: 20130719
  Receipt Date: 20130719
  Transmission Date: 20140515
  Serious: No
  Sender: FDA-Public Use
  Company Number: CA-TEVA-417585USA

PATIENT
  Age: 28 Year
  Sex: Female

DRUGS (2)
  1. PLAN B ONE-STEP [Suspect]
     Indication: CONTRACEPTION
     Dosage: 2 TB (2X0.75 MG)
     Route: 048
     Dates: start: 20130624, end: 20130624
  2. GRAVOL [Concomitant]
     Dates: start: 20130624

REACTIONS (3)
  - Metrorrhagia [Not Recovered/Not Resolved]
  - Nausea [Unknown]
  - Abdominal pain [Unknown]
